FAERS Safety Report 5400926-6 (Version None)
Quarter: 2007Q3

REPORT INFORMATION
  Report Type: 
  Country: None (occurrence: None)
  Receive Date: 20070730
  Receipt Date: 20070126
  Transmission Date: 20080115
  Serious: No
  Sender: FDA-Public Use
  Company Number: A0634723A

PATIENT
  Age: 2 Month
  Sex: Male
  Weight: 6.4 kg

DRUGS (2)
  1. ZANTAC 150 [Suspect]
     Dosage: .4ML FOUR TIMES PER DAY
     Route: 048
     Dates: start: 20070103, end: 20070105
  2. MOTRIN [Concomitant]
     Indication: DISCOMFORT
     Route: 048
     Dates: start: 20070104, end: 20070105

REACTIONS (2)
  - CRYING [None]
  - DISCOMFORT [None]
